FAERS Safety Report 14211910 (Version 4)
Quarter: 2018Q1

REPORT INFORMATION
  Report Type: Report from Study
  Country: US (occurrence: US)
  Receive Date: 20171122
  Receipt Date: 20180118
  Transmission Date: 20180508
  Serious: Yes (Other)
  Sender: FDA-Public Use
  Company Number: US-JNJFOC-20170427206

PATIENT
  Age: 79 Year
  Sex: Male

DRUGS (11)
  1. IMBRUVICA [Suspect]
     Active Substance: IBRUTINIB
     Indication: CHRONIC LYMPHOCYTIC LEUKAEMIA
     Route: 048
     Dates: start: 20170111
  2. COREG [Concomitant]
     Active Substance: CARVEDILOL
  3. IMBRUVICA [Suspect]
     Active Substance: IBRUTINIB
     Indication: LYMPHOID LEUKAEMIA (IN REMISSION)
     Route: 048
     Dates: start: 20161109
  4. IMBRUVICA [Suspect]
     Active Substance: IBRUTINIB
     Indication: CHRONIC LYMPHOCYTIC LEUKAEMIA
     Route: 048
     Dates: start: 20161109
  5. IMBRUVICA [Suspect]
     Active Substance: IBRUTINIB
     Indication: LYMPHOID LEUKAEMIA (IN REMISSION)
     Route: 048
     Dates: start: 20170111
  6. IMBRUVICA [Suspect]
     Active Substance: IBRUTINIB
     Indication: LYMPHOID LEUKAEMIA (IN REMISSION)
     Route: 048
     Dates: start: 20161013
  7. IMBRUVICA [Suspect]
     Active Substance: IBRUTINIB
     Indication: CHRONIC LYMPHOCYTIC LEUKAEMIA
     Route: 048
     Dates: start: 20161111
  8. CETIRIZINE [Concomitant]
     Active Substance: CETIRIZINE HYDROCHLORIDE
  9. IMBRUVICA [Suspect]
     Active Substance: IBRUTINIB
     Indication: CHRONIC LYMPHOCYTIC LEUKAEMIA
     Route: 048
     Dates: start: 20161013
  10. IMBRUVICA [Suspect]
     Active Substance: IBRUTINIB
     Indication: LYMPHOID LEUKAEMIA (IN REMISSION)
     Route: 048
     Dates: start: 20161111
  11. BYSTOLIC [Concomitant]
     Active Substance: NEBIVOLOL HYDROCHLORIDE

REACTIONS (11)
  - Rotator cuff syndrome [Not Recovered/Not Resolved]
  - Off label use [Unknown]
  - Foot fracture [Unknown]
  - Fall [Unknown]
  - Lower limb fracture [Unknown]
  - Peripheral swelling [Not Recovered/Not Resolved]
  - Upper limb fracture [Unknown]
  - Accident [Unknown]
  - Rib fracture [Unknown]
  - Inappropriate schedule of drug administration [Unknown]
  - Nasopharyngitis [Unknown]

NARRATIVE: CASE EVENT DATE: 20161109
